FAERS Safety Report 7643736-1 (Version None)
Quarter: 2011Q3

REPORT INFORMATION
  Report Type: 
  Country: None (occurrence: None)
  Receive Date: 20110722
  Receipt Date: 20110706
  Transmission Date: 20111222
  Serious: Yes (Other)
  Sender: FDA-Public Use
  Company Number: 2009S1005899

PATIENT
  Age: 53 Year
  Sex: Female
  Weight: 72.5755 kg

DRUGS (4)
  1. EXCEDRIN (MIGRAINE) [Concomitant]
  2. IMITREX [Concomitant]
  3. TRICOR [Concomitant]
  4. PHOSPHO-SODA [Suspect]
     Indication: COLONOSCOPY
     Dates: start: 20080401, end: 20080401

REACTIONS (1)
  - RENAL FAILURE CHRONIC [None]
